FAERS Safety Report 6054905-9 (Version None)
Quarter: 2009Q1

REPORT INFORMATION
  Report Type: 
  Country: None (occurrence: None)
  Receive Date: 20090128
  Receipt Date: 20090116
  Transmission Date: 20090719
  Serious: Yes (Other)
  Sender: FDA-Public Use
  Company Number: PHEH2009US00902

PATIENT
  Age: 62 Year
  Sex: Female

DRUGS (5)
  1. ZOMETA [Suspect]
     Indication: METASTASES TO BONE
     Dosage: 4 MG, QMO
     Route: 042
  2. RADIATION THERAPY [Suspect]
     Indication: BREAST CANCER
  3. TAXOTERE [Suspect]
     Indication: BREAST CANCER
  4. ABRAXANE [Suspect]
     Indication: BREAST CANCER
  5. FEMARA [Concomitant]
     Indication: BREAST CANCER

REACTIONS (6)
  - ASTHENIA [None]
  - DYSPNOEA [None]
  - ENDODONTIC PROCEDURE [None]
  - FATIGUE [None]
  - MASTICATION DISORDER [None]
  - TOOTH FRACTURE [None]
